FAERS Safety Report 10338073 (Version 1)
Quarter: 2014Q3

REPORT INFORMATION
  Report Type: Report from Study
  Country: CA (occurrence: CA)
  Receive Date: 20140724
  Receipt Date: 20140724
  Transmission Date: 20150326
  Serious: Yes (Other)
  Sender: FDA-Public Use
  Company Number: CA-JNJFOC-20140712015

PATIENT
  Age: 31 Year
  Sex: Male
  Weight: 77 kg

DRUGS (7)
  1. BENADRYL [Concomitant]
     Active Substance: DIPHENHYDRAMINE HYDROCHLORIDE
     Indication: PREMEDICATION
     Route: 042
  2. TYLENOL [Concomitant]
     Active Substance: ACETAMINOPHEN
     Indication: PREMEDICATION
     Route: 048
  3. REMICADE [Suspect]
     Active Substance: INFLIXIMAB
     Indication: COLITIS ULCERATIVE
     Dosage: THIRD LOADING DOSE
     Route: 042
     Dates: start: 20140603
  4. REMICADE [Suspect]
     Active Substance: INFLIXIMAB
     Indication: COLITIS ULCERATIVE
     Dosage: LOADING DOSE
     Route: 042
     Dates: start: 2008
  5. REMICADE [Suspect]
     Active Substance: INFLIXIMAB
     Indication: COLITIS ULCERATIVE
     Dosage: THIRD LOADING DOSE
     Route: 042
     Dates: start: 20140717
  6. REMICADE [Suspect]
     Active Substance: INFLIXIMAB
     Indication: COLITIS ULCERATIVE
     Route: 042
     Dates: start: 2014
  7. SOLU-CORTEF [Concomitant]
     Active Substance: HYDROCORTISONE SODIUM SUCCINATE
     Indication: PREMEDICATION
     Route: 042

REACTIONS (6)
  - Flushing [Recovered/Resolved]
  - Infusion related reaction [Unknown]
  - Pruritus [Unknown]
  - Oxygen saturation decreased [Recovered/Resolved]
  - Chest discomfort [Recovered/Resolved]
  - Dyspnoea [Recovered/Resolved]

NARRATIVE: CASE EVENT DATE: 2014
